FAERS Safety Report 5225710-8 (Version None)
Quarter: 2007Q1

REPORT INFORMATION
  Report Type: 
  Country: None (occurrence: None)
  Receive Date: 20070126
  Receipt Date: 20070115
  Transmission Date: 20070707
  Serious: Yes (Hospitalization)
  Sender: FDA-Public Use
  Company Number: HQWYE784518JAN07

PATIENT
  Age: 23 Year
  Sex: Male

DRUGS (3)
  1. EFFEXOR XR [Suspect]
     Dosage: OVERDOSE AMOUNT 1125 MG
     Dates: start: 20040101, end: 20040101
  2. ADVIL [Suspect]
     Dosage: OVERDOSE AMOUNT 2 G
     Dates: start: 20040101, end: 20040101
  3. BROMAZEPAM [Suspect]
     Dates: start: 20040101, end: 20040101

REACTIONS (2)
  - HYPERTENSION [None]
  - MULTIPLE DRUG OVERDOSE [None]
